FAERS Safety Report 20866828 (Version 1)
Quarter: 2022Q2

REPORT INFORMATION
  Report Type: Spontaneous
  Country: US (occurrence: None)
  Receive Date: 20220523
  Receipt Date: 20220523
  Transmission Date: 20220720
  Serious: No
  Sender: FDA-Public Use
  Company Number: None

PATIENT
  Age: 29 Year
  Sex: Male

DRUGS (1)
  1. SERTRALINE HYDROCHLORIDE [Suspect]
     Active Substance: SERTRALINE HYDROCHLORIDE
     Indication: Anxiety disorder
     Dosage: FREQUENCY : DAILY;?
     Route: 048
     Dates: start: 20211201

REACTIONS (2)
  - Tinnitus [None]
  - Product substitution issue [None]

NARRATIVE: CASE EVENT DATE: 20220301
